FAERS Safety Report 18326817 (Version 1)
Quarter: 2020Q3

REPORT INFORMATION
  Report Type: Spontaneous
  Country: NL (occurrence: NL)
  Receive Date: 20200930
  Receipt Date: 20200930
  Transmission Date: 20201103
  Serious: Yes (Death, Hospitalization)
  Sender: FDA-Public Use
  Company Number: NL-ROCHE-2687029

PATIENT
  Age: 20 Year
  Sex: Female
  Weight: 79 kg

DRUGS (17)
  1. TOCILIZUMAB. [Suspect]
     Active Substance: TOCILIZUMAB
     Indication: MIXED CONNECTIVE TISSUE DISEASE
     Route: 065
     Dates: start: 20200629, end: 20200630
  2. HEPARIN [Concomitant]
     Active Substance: HEPARIN SODIUM
     Dosage: INFUSIEVLOEISTOF, 100 IE/ML (EENHEDEN PER MILLILITER)
  3. CEFUROXIME. [Concomitant]
     Active Substance: CEFUROXIME
     Dosage: POEDER INJECTIEVLOEISTOF, 750 MG (MILLIGRAM)
  4. METRONIDAZOLE. [Concomitant]
     Active Substance: METRONIDAZOLE
     Dosage: INFUSIEVLOEISTOF, 5 MG/ML (MILLIGRAM PER MILLILITER)
  5. DEXAMETHASON [Concomitant]
     Active Substance: DEXAMETHASONE
     Dosage: INJECTIEVLOEISTOF, 10 MG/ML (MILLIGRAM PER MILLILITER)
  6. MEROPENEM. [Concomitant]
     Active Substance: MEROPENEM
     Dosage: POEDER INJECTIEVLOEISTOF, 1000 MG (MILLIGRAM)
  7. CIPROFLOXACINE [Concomitant]
     Active Substance: CIPROFLOXACIN
     Dosage: INFUSIEVLOEISTOF, 2 MG/ML (MILLIGRAM PER MILLILITER)
  8. MORFINE [Concomitant]
     Active Substance: MORPHINE
     Dosage: INFUSIEVLOEISTOF, 10 MG/ML (MILLIGRAM PER MILLILITER)
  9. METHYLPREDNISOLON [Concomitant]
     Active Substance: METHYLPREDNISOLONE
     Dosage: INJECTIE/INFUUS, 1 MG/MG (MILLIGRAM PER MILLIGRAM)
  10. BENZYLPENICILLINE [Concomitant]
     Active Substance: PENICILLIN G
     Dosage: INFUSIEVLOEISTOF, 10000 IE/ML (EENHEDEN PER MILLILITER)
  11. AMPHOTERICIN B. [Concomitant]
     Active Substance: AMPHOTERICIN B
     Dosage: OPLOSSING VOOR INFUUS, 5 MG/ML (MILLIGRAM PER MILLILITER)
  12. PANTOPRAZOL [Concomitant]
     Active Substance: PANTOPRAZOLE SODIUM
     Route: 065
  13. INSULINE ASPARTE [Concomitant]
     Active Substance: INSULIN ASPART
     Dosage: INJECTIEVLOEISTOF, 100 EENHEDEN/ML (EENHEDEN PER MILLILITER)
  14. METOCLOPRAMIDE. [Concomitant]
     Active Substance: METOCLOPRAMIDE
     Dosage: INFUSIEVLOEISTOF, 2,5 MG/ML (MILLIGRAM PER MILLILITER)
  15. FENTANYL. [Concomitant]
     Active Substance: FENTANYL
     Dosage: IV
  16. ERYTHROMYCIN. [Concomitant]
     Active Substance: ERYTHROMYCIN
     Dosage: INJECTIEVLOEISTOF
  17. PREGABALINE [Concomitant]
     Active Substance: PREGABALIN
     Dosage: CAPSULE, 150 MG (MILLIGRAM)

REACTIONS (1)
  - Leukopenia [Fatal]

NARRATIVE: CASE EVENT DATE: 20200704
